FAERS Safety Report 15145489 (Version 1)
Quarter: 2018Q3

REPORT INFORMATION
  Report Type: Spontaneous
  Country: US (occurrence: US)
  Receive Date: 20180713
  Receipt Date: 20180713
  Transmission Date: 20181010
  Serious: No
  Sender: FDA-Public Use
  Company Number: US-009507513-1106USA00836

PATIENT
  Age: 35 Year
  Sex: Female

DRUGS (10)
  1. DARUNAVIR [Suspect]
     Active Substance: DARUNAVIR
     Route: 048
  2. EMTRICITABINE (+) TENOFOVIR DISOPROXIL FUMARATE [Suspect]
     Active Substance: EMTRICITABINE\TENOFOVIR DISOPROXIL
     Route: 048
  3. ATAZANAVIR. [Suspect]
     Active Substance: ATAZANAVIR SULFATE
  4. ABACAVIR. [Suspect]
     Active Substance: ABACAVIR
  5. ISENTRESS [Suspect]
     Active Substance: RALTEGRAVIR POTASSIUM
     Route: 048
  6. ZIDOVUDINE. [Suspect]
     Active Substance: ZIDOVUDINE
  7. TENOFOVIR DISOPROXIL FUMARATE. [Suspect]
     Active Substance: TENOFOVIR DISOPROXIL FUMARATE
  8. LAMIVUDINE. [Suspect]
     Active Substance: LAMIVUDINE
  9. RITONAVIR. [Suspect]
     Active Substance: RITONAVIR
     Route: 048
  10. ETRAVIRINE [Suspect]
     Active Substance: ETRAVIRINE
     Route: 048

REACTIONS (1)
  - Exposure during pregnancy [Recovered/Resolved]
